FAERS Safety Report 16233556 (Version 1)
Quarter: 2019Q2

REPORT INFORMATION
  Report Type: Spontaneous
  Country: US (occurrence: US)
  Receive Date: 20190423
  Receipt Date: 20190423
  Transmission Date: 20190711
  Serious: Yes (Other)
  Sender: FDA-Public Use
  Company Number: None

PATIENT
  Weight: 120 kg

DRUGS (11)
  1. METOPROLOL SUCCINATE. [Concomitant]
     Active Substance: METOPROLOL SUCCINATE
  2. TYLENOL [Concomitant]
     Active Substance: ACETAMINOPHEN
  3. GABAPENTIN. [Concomitant]
     Active Substance: GABAPENTIN
  4. OMEPRAZOLE. [Concomitant]
     Active Substance: OMEPRAZOLE
  5. FERROUS SULFATE. [Concomitant]
     Active Substance: FERROUS SULFATE
  6. TORSEMIDE. [Concomitant]
     Active Substance: TORSEMIDE
  7. NINLARO [Suspect]
     Active Substance: IXAZOMIB CITRATE
     Indication: PLASMA CELL MYELOMA
     Dosage: 3 MG QD 3 WK ON 1WK OFF; ORAL?
     Route: 048
     Dates: start: 20190221, end: 20190423
  8. ACYCLOVIR. [Concomitant]
     Active Substance: ACYCLOVIR
  9. LIPITOR [Concomitant]
     Active Substance: ATORVASTATIN CALCIUM
  10. DEXAMETHASONE. [Suspect]
     Active Substance: DEXAMETHASONE
     Indication: PLASMA CELL MYELOMA
     Dosage: ?          OTHER FREQUENCY:ONCE WEEKLY;?
     Route: 048
     Dates: start: 20190221, end: 20190423
  11. VITAMIN C [Concomitant]
     Active Substance: ASCORBIC ACID

REACTIONS (2)
  - Hospice care [None]
  - Therapy cessation [None]
